FAERS Safety Report 6771597-1 (Version None)
Quarter: 2010Q2

REPORT INFORMATION
  Report Type: 
  Country: None (occurrence: None)
  Receive Date: 20100616
  Receipt Date: 20100603
  Transmission Date: 20101027
  Serious: Yes (Other)
  Sender: FDA-Public Use
  Company Number: PHHY2008CA32588

PATIENT
  Sex: Male

DRUGS (5)
  1. SANDOSTATIN LAR [Suspect]
     Indication: CARCINOID TUMOUR
     Dosage: 30 MG EVERY 4 WEEKS
     Route: 030
     Dates: start: 20050831
  2. SANDOSTATIN LAR [Suspect]
     Dosage: 40 MG Q4 WEEKS
     Route: 030
  3. SANDOSTATIN LAR [Suspect]
     Dosage: 40 MG Q4 WEEKS
     Route: 030
     Dates: start: 20090211
  4. SANDOSTATIN LAR [Suspect]
     Dosage: 30 MG Q4 WEEKS
     Route: 030
     Dates: start: 20090311
  5. SANDOSTATIN LAR [Suspect]
     Dosage: 30 MG, QMO
     Route: 030

REACTIONS (13)
  - ABDOMINAL PAIN UPPER [None]
  - BLOOD PRESSURE INCREASED [None]
  - DIARRHOEA [None]
  - FATIGUE [None]
  - INFECTIOUS MONONUCLEOSIS [None]
  - LIP AND/OR ORAL CAVITY CANCER [None]
  - MALAISE [None]
  - NASOPHARYNGITIS [None]
  - NAUSEA [None]
  - THYROID NEOPLASM [None]
  - THYROIDECTOMY [None]
  - VOMITING [None]
  - WEIGHT DECREASED [None]
